FAERS Safety Report 4339637-7 (Version None)
Quarter: 2004Q1

REPORT INFORMATION
  Report Type: 
  Country: None (occurrence: None)
  Receive Date: 20040329
  Receipt Date: 20040219
  Transmission Date: 20041129
  Serious: No
  Sender: FDA-Public Use
  Company Number: 04P-163-0251014-00

PATIENT
  Age: 58 Year
  Sex: Female
  Weight: 46.2669 kg

DRUGS (5)
  1. HUMIRA [Suspect]
     Indication: RHEUMATOID ARTHRITIS
     Dosage: 40 MG, 1 IN 2 WK, SUBCUTANEOUS
     Route: 058
     Dates: start: 20030401, end: 20031001
  2. PREDNISONE [Concomitant]
  3. ASCORBIC ACID [Concomitant]
  4. FAMOTIDINE [Concomitant]
  5. CALCIUM WITH VITAMIN D [Concomitant]

REACTIONS (3)
  - ORAL MUCOSAL BLISTERING [None]
  - PRURITUS [None]
  - RASH PAPULAR [None]
